FAERS Safety Report 20499786 (Version 1)
Quarter: 2022Q1

REPORT INFORMATION
  Report Type: Spontaneous
  Country: US (occurrence: US)
  Receive Date: 20220222
  Receipt Date: 20220222
  Transmission Date: 20220423
  Serious: No
  Sender: FDA-Public Use
  Company Number: US-UCBSA-2021010434

PATIENT

DRUGS (1)
  1. KEPPRA [Suspect]
     Active Substance: LEVETIRACETAM
     Indication: Epilepsy
     Dosage: 750MG TWO TIMES TWICE A DAY

REACTIONS (4)
  - Loss of personal independence in daily activities [Unknown]
  - Fatigue [Unknown]
  - Asthenia [Unknown]
  - Somnolence [Unknown]
